FAERS Safety Report 5390422-7 (Version None)
Quarter: 2007Q3

REPORT INFORMATION
  Report Type: 
  Country: None (occurrence: None)
  Receive Date: 20070718
  Receipt Date: 20060927
  Transmission Date: 20080115
  Serious: No
  Sender: FDA-Public Use
  Company Number: US-KINGPHARMUSA00001-K200601235

PATIENT

DRUGS (2)
  1. LEVOXYL [Suspect]
     Indication: HYPOTHYROIDISM
     Dosage: 150 MCG, QD
     Route: 048
     Dates: start: 20060921, end: 20060922
  2. SYNTHROID [Concomitant]
     Dates: end: 20060921

REACTIONS (4)
  - CONVULSION [None]
  - MUSCLE SPASMS [None]
  - NERVOUSNESS [None]
  - TREMOR [None]
